FAERS Safety Report 5108644-9 (Version None)
Quarter: 2006Q3

REPORT INFORMATION
  Report Type: 
  Country: None (occurrence: None)
  Receive Date: 20060915
  Receipt Date: 20060901
  Transmission Date: 20061208
  Serious: Yes (Hospitalization, Other)
  Sender: FDA-Public Use
  Company Number: 2006AL002671

PATIENT
  Age: 33 Year
  Sex: Male

DRUGS (2)
  1. CARBAMAZEPINE [Suspect]
     Indication: MOOD SWINGS
     Route: 048
  2. AMITRIPTYLINE HCL [Concomitant]

REACTIONS (13)
  - ALANINE AMINOTRANSFERASE INCREASED [None]
  - ASPARTATE AMINOTRANSFERASE INCREASED [None]
  - BACK PAIN [None]
  - CHILLS [None]
  - DEPRESSION [None]
  - HYPERSENSITIVITY [None]
  - LABORATORY TEST ABNORMAL [None]
  - LYMPHOCYTE STIMULATION TEST POSITIVE [None]
  - PAIN [None]
  - PLATELET COUNT DECREASED [None]
  - PYREXIA [None]
  - RASH PAPULAR [None]
  - WHITE BLOOD CELL COUNT DECREASED [None]
